FAERS Safety Report 5570294-8 (Version None)
Quarter: 2007Q4

REPORT INFORMATION
  Report Type: 
  Country: None (occurrence: None)
  Receive Date: 20071219
  Receipt Date: 20071219
  Transmission Date: 20080405
  Serious: Yes (Death)
  Sender: FDA-Public Use
  Company Number: None

PATIENT
  Age: 41 Year
  Sex: Male
  Weight: 116.1208 kg

DRUGS (1)
  1. KETOROLAC TROMETHAMINE [Suspect]
     Indication: JOINT SPRAIN
     Dosage: 60MG ONCE IM
     Route: 030
     Dates: start: 20070818, end: 20070818

REACTIONS (2)
  - DYSPNOEA [None]
  - NAUSEA [None]
